FAERS Safety Report 15498222 (Version 1)
Quarter: 2018Q4

REPORT INFORMATION
  Report Type: Spontaneous
  Country: KZ (occurrence: KZ)
  Receive Date: 20181015
  Receipt Date: 20181015
  Transmission Date: 20190205
  Serious: Yes (Hospitalization)
  Sender: FDA-Public Use
  Company Number: KZ-BAYER-2018-188581

PATIENT
  Age: 19 Year
  Sex: Female

DRUGS (2)
  1. SOLGAR FORMULA VM-75 [Concomitant]
     Active Substance: MINERALS\VITAMINS
     Dosage: UNK
     Dates: start: 20180801, end: 20180903
  2. YAZ [Suspect]
     Active Substance: DROSPIRENONE\ETHINYL ESTRADIOL
     Indication: MENSTRUAL CYCLE MANAGEMENT
     Dosage: UNK
     Route: 048
     Dates: start: 20180815, end: 20180903

REACTIONS (9)
  - Off label use [None]
  - Abdominal pain upper [Recovering/Resolving]
  - Blood bilirubin increased [Recovering/Resolving]
  - Drug-induced liver injury [Recovering/Resolving]
  - Product use in unapproved indication [None]
  - Pruritus [Recovering/Resolving]
  - Aspartate aminotransferase increased [Recovering/Resolving]
  - Nausea [Recovering/Resolving]
  - Alanine aminotransferase increased [Recovering/Resolving]

NARRATIVE: CASE EVENT DATE: 20180906
